FAERS Safety Report 15571713 (Version 1)
Quarter: 2018Q4

REPORT INFORMATION
  Report Type: Spontaneous
  Country: US (occurrence: US)
  Receive Date: 20181031
  Receipt Date: 20181031
  Transmission Date: 20190205
  Serious: Yes (Other)
  Sender: FDA-Public Use
  Company Number: PHHY2018US136239

PATIENT

DRUGS (3)
  1. OXYMETHOLONE [Suspect]
     Active Substance: OXYMETHOLONE
     Dosage: 2 MG/KG, QD
     Route: 065
  2. GRANULOCYTE COLONY STIMULATING FACTOR [Suspect]
     Active Substance: GRANULOCYTE COLONY-STIMULATING FACTOR NOS
     Indication: PRODUCT USED FOR UNKNOWN INDICATION
     Route: 065
  3. OXYMETHOLONE [Suspect]
     Active Substance: OXYMETHOLONE
     Indication: APLASTIC ANAEMIA
     Dosage: 0.8 MG/KG, QD
     Route: 065

REACTIONS (3)
  - Splenic peliosis [Unknown]
  - Full blood count decreased [Unknown]
  - Splenic rupture [Unknown]
